FAERS Safety Report 4280546-X (Version None)
Quarter: 2004Q1

REPORT INFORMATION
  Report Type: 
  Country: None (occurrence: None)
  Receive Date: 20040128
  Receipt Date: 20040119
  Transmission Date: 20041129
  Serious: Yes (Hospitalization, Other)
  Sender: FDA-Public Use
  Company Number: WAES 0401USA01491

PATIENT
  Age: 89 Year
  Sex: Female
  Weight: 60 kg

DRUGS (2)
  1. FOSAMAX [Suspect]
     Indication: OSTEOPOROSIS
     Route: 048
     Dates: end: 20040115
  2. ASPIRIN [Concomitant]
     Indication: ARTHRITIS
     Route: 048
     Dates: end: 20040115

REACTIONS (1)
  - GASTRIC ULCER HAEMORRHAGE [None]
